FAERS Safety Report 5417948-1 (Version None)
Quarter: 2007Q3

REPORT INFORMATION
  Report Type: 
  Country: None (occurrence: None)
  Receive Date: 20070815
  Receipt Date: 20070806
  Transmission Date: 20080115
  Serious: Yes (Hospitalization)
  Sender: FDA-Public Use
  Company Number: 233271K07USA

PATIENT
  Age: 39 Year
  Sex: Male
  Weight: 108.8633 kg

DRUGS (4)
  1. REBIF [Suspect]
     Indication: MULTIPLE SCLEROSIS
     Dosage: 44 MCG, 3 IN 1 WEEKS, SUBCUTANEOUS
     Route: 058
     Dates: start: 20050125, end: 20070511
  2. PROZAC [Concomitant]
  3. NEURONTIN [Concomitant]
  4. OXYBUTYNIN (OXYBUTYNIN /00538901/) [Concomitant]

REACTIONS (12)
  - ADHESION [None]
  - CONDITION AGGRAVATED [None]
  - EATING DISORDER [None]
  - HYPERCHOLESTEROLAEMIA [None]
  - HYPERTENSION [None]
  - MULTIPLE SCLEROSIS [None]
  - NEUTROPENIA [None]
  - PANCREATIC PSEUDOCYST [None]
  - PANCREATITIS [None]
  - POST PROCEDURAL PNEUMONIA [None]
  - SLEEP APNOEA SYNDROME [None]
  - SPLENECTOMY [None]
